FAERS Safety Report 9845061 (Version 1)
Quarter: 2014Q1

REPORT INFORMATION
  Report Type: Spontaneous
  Country: FR (occurrence: None)
  Receive Date: 20140122
  Receipt Date: 20140122
  Transmission Date: 20141002
  Serious: Yes (Other)
  Sender: FDA-Public Use
  Company Number: DSM-2014-00019

PATIENT
  Age: 95 Year
  Sex: Female

DRUGS (8)
  1. ALTEIS [Suspect]
     Indication: PRODUCT USED FOR UNKNOWN INDICATION
     Dosage: 40MG (40MG, 1 IN 1 D) ORAL
     Route: 048
  2. NEBIVOLOL [Suspect]
     Indication: PRODUCT USED FOR UNKNOWN INDICATION
     Dosage: 5MG (5MG, 1 IN 1 D, ORAL)
     Route: 048
  3. FUROSEMIDE [Suspect]
     Indication: PRODUCT USED FOR UNKNOWN INDICATION
     Dosage: 40MG (40MG, 1 IN 1D) ORAL
     Route: 048
  4. SEROPLEX [Suspect]
     Indication: PRODUCT USED FOR UNKNOWN INDICATION
     Dosage: 15MG, (15MG, 1 IN 1 D) ORAL
     Route: 048
  5. AMLODIPINE [Suspect]
     Indication: PRODUCT USED FOR UNKNOWN INDICATION
     Dosage: 5MG (5MG, 1 IN 1 D) ORAL
     Route: 048
  6. LEVOTHYROX [Suspect]
     Indication: PRODUCT USED FOR UNKNOWN INDICATION
     Dosage: 125MCG, (125MCG, 1 IN 1
  7. ZOPICLONE [Suspect]
     Indication: PRODUCT USED FOR UNKNOWN INDICATION
     Route: 048
  8. DIFFU K [Suspect]
     Indication: PRODUCT USED FOR UNKNOWN INDICATION
     Route: 048

REACTIONS (1)
  - Thrombocytopenia [None]
